FAERS Safety Report 8831186 (Version 1)
Quarter: 2012Q4

REPORT INFORMATION
  Report Type: Spontaneous
  Country: US (occurrence: None)
  Receive Date: 20121005
  Receipt Date: 20121005
  Transmission Date: 20130627
  Serious: Yes (Other)
  Sender: FDA-Public Use
  Company Number: None

PATIENT
  Age: 42 Year
  Sex: Female
  Weight: 96.16 kg

DRUGS (1)
  1. SERTRALINE [Suspect]
     Indication: ANXIETY
     Dates: start: 20110201, end: 20110204

REACTIONS (7)
  - Drug ineffective [None]
  - Withdrawal syndrome [None]
  - Headache [None]
  - Chills [None]
  - Pain [None]
  - Asthenia [None]
  - Product substitution issue [None]
